FAERS Safety Report 24960473 (Version 2)
Quarter: 2025Q1

REPORT INFORMATION
  Report Type: Spontaneous
  Country: ES (occurrence: ES)
  Receive Date: 20250212
  Receipt Date: 20250220
  Transmission Date: 20250408
  Serious: Yes (Death, Hospitalization)
  Sender: PFIZER
  Company Number: ES-ROCHE-3063260

PATIENT
  Age: 69 Year
  Sex: Female
  Weight: 63.6 kg

DRUGS (24)
  1. PACLITAXEL [Suspect]
     Active Substance: PACLITAXEL
     Indication: Ovarian epithelial cancer
     Dosage: 130.4 MG, WEEKLY
     Route: 042
     Dates: start: 20220103
  2. PACLITAXEL [Suspect]
     Active Substance: PACLITAXEL
     Dates: end: 20220314
  3. IPATASERTIB [Suspect]
     Active Substance: IPATASERTIB
     Indication: Ovarian epithelial cancer
     Dosage: 400 MG, 1X/DA
     Route: 048
     Dates: start: 20220103
  4. IPATASERTIB [Suspect]
     Active Substance: IPATASERTIB
     Dates: start: 20220320
  5. DIAZEPAM [Concomitant]
     Active Substance: DIAZEPAM
     Indication: Anxiety
     Dosage: 5 MG, 1X/DAY
     Route: 048
     Dates: start: 2013
  6. LOPERAMIDE [Concomitant]
     Active Substance: LOPERAMIDE
     Indication: Diarrhoea
     Dosage: 2 MG, 2X/DAY
     Route: 048
     Dates: start: 20220103
  7. PRAMIPEXOLE [Concomitant]
     Active Substance: PRAMIPEXOLE
     Indication: Restless legs syndrome
     Dosage: 0.26 MG, 1X/DAY
     Route: 048
     Dates: start: 2019
  8. SERTRALINE [Concomitant]
     Active Substance: SERTRALINE HYDROCHLORIDE
     Indication: Depression
     Dosage: 100 MG, 1X/DAY
     Route: 048
     Dates: start: 2013
  9. SYMBICORT [Concomitant]
     Active Substance: BUDESONIDE\FORMOTEROL FUMARATE DIHYDRATE
     Indication: Bronchiectasis
     Dosage: 2X/DAY, INHALATION
     Route: 055
     Dates: start: 2017
  10. ALBUTEROL [Concomitant]
     Active Substance: ALBUTEROL
     Indication: Bronchial disorder
     Route: 055
     Dates: start: 2012
  11. CEFDITOREN [Concomitant]
     Active Substance: CEFDITOREN
     Dosage: 400 MG, 2X/DAY
     Route: 048
     Dates: start: 20220325, end: 20220328
  12. MYCOSTATIN [Concomitant]
     Active Substance: NYSTATIN
     Indication: Mucosal inflammation
     Dosage: 20 ML, 3X/DAY
     Route: 048
     Dates: start: 20220117, end: 20220331
  13. LIDOCAINE [Concomitant]
     Active Substance: LIDOCAINE
     Indication: Mucosal inflammation
     Dosage: 10 ML, 3X/DAY
     Route: 048
     Dates: start: 20220117, end: 20220331
  14. RANITIDINE [Concomitant]
     Active Substance: RANITIDINE
     Indication: Prophylactic chemotherapy
     Dosage: 50 MG, 1X/DAY
     Route: 042
     Dates: start: 20220103
  15. DEXAMETHASONE [Concomitant]
     Active Substance: DEXAMETHASONE
     Indication: Prophylactic chemotherapy
     Dosage: 12 MG, 1X/DAY
     Route: 042
     Dates: start: 20220103
  16. DEXCHLORPHENIRAMINE [Concomitant]
     Active Substance: DEXCHLORPHENIRAMINE
     Indication: Prophylactic chemotherapy
     Dosage: 5 MG, 1X/DAY
     Route: 042
     Dates: start: 20220103
  17. EBASTINE [Concomitant]
     Active Substance: EBASTINE
     Indication: Rash
     Dosage: 20 MG, 1X/DAY
     Route: 048
     Dates: start: 20220131, end: 20220314
  18. FENOFIBRATE\PRAVASTATIN [Concomitant]
     Active Substance: FENOFIBRATE\PRAVASTATIN
     Indication: Hypertriglyceridaemia
     Dosage: 1 TABLET, 1X/DAY
     Route: 048
     Dates: start: 20220131
  19. FERINJECT [Concomitant]
     Active Substance: FERRIC CARBOXYMALTOSE
     Indication: Haemoglobin decreased
     Route: 042
     Dates: start: 20220926, end: 20220926
  20. LORAZEPAM [Concomitant]
     Active Substance: LORAZEPAM
     Indication: Restless legs syndrome
     Route: 048
     Dates: start: 20220926, end: 20220926
  21. MAGNOGENE [Concomitant]
     Indication: Hypomagnesaemia
     Dosage: 53 MG, 1X/DAY
     Route: 048
     Dates: start: 20220801
  22. DEXKETOPROFEN TROMETAMOL [Concomitant]
     Active Substance: DEXKETOPROFEN TROMETAMOL
     Indication: Back pain
     Dosage: 25 MG, 3X/DAY
     Route: 048
     Dates: start: 20221107
  23. MORPHINE [Concomitant]
     Active Substance: MORPHINE
     Indication: Back pain
     Dosage: 15 MG, 2X/DAY
     Route: 048
     Dates: start: 20221121
  24. FENTANYL [Concomitant]
     Active Substance: FENTANYL
     Indication: Back pain
     Dosage: 100 UG, 4X/DAY
     Route: 048
     Dates: start: 20221121

REACTIONS (3)
  - Death [Fatal]
  - Pneumonia [Recovered/Resolved]
  - Alanine aminotransferase increased [Recovered/Resolved]

NARRATIVE: CASE EVENT DATE: 20220320
